FAERS Safety Report 9826682 (Version 2)
Quarter: 2014Q1

REPORT INFORMATION
  Report Type: Spontaneous
  Country: US (occurrence: None)
  Receive Date: 20140115
  Receipt Date: 20140122
  Transmission Date: 20141002
  Serious: Yes (Death)
  Sender: FDA-Public Use
  Company Number: UTC-042890

PATIENT
  Age: 70 Year
  Sex: Female
  Weight: 53.18 kg

DRUGS (1)
  1. TYVASO [Suspect]
     Indication: COR PULMONALE CHRONIC
     Dosage: 4 IN 1 D, INHALATION
     Route: 055
     Dates: start: 20130520

REACTIONS (3)
  - Death [None]
  - Sepsis [None]
  - Respiratory failure [None]
